FAERS Safety Report 21821098 (Version 1)
Quarter: 2023Q1

REPORT INFORMATION
  Report Type: Spontaneous
  Country: US (occurrence: US)
  Receive Date: 20230105
  Receipt Date: 20230105
  Transmission Date: 20230418
  Serious: No
  Sender: FDA-Public Use
  Company Number: US-AMGEN-USASP2022227756

PATIENT
  Sex: Female

DRUGS (6)
  1. ENBREL [Suspect]
     Active Substance: ETANERCEPT
     Indication: Rheumatoid arthritis
     Dosage: 50 MILLIGRAM, QWK
     Route: 058
  2. METHOTREXATE [Concomitant]
     Active Substance: METHOTREXATE
     Dosage: 2.5 MILLIGRAM
     Route: 065
  3. ASPIRIN [Concomitant]
     Active Substance: ASPIRIN
     Dosage: 325 MILLIGRAM
     Route: 065
  4. ATENOLOL [Concomitant]
     Active Substance: ATENOLOL
     Dosage: 100 MILLIGRAM
     Route: 065
  5. LISINOPRIL [Concomitant]
     Active Substance: LISINOPRIL
     Dosage: 40 MILLIGRAM
     Route: 065
  6. OMEPRAZOLE [Concomitant]
     Active Substance: OMEPRAZOLE
     Dosage: 40 MILLIGRAM
     Route: 065

REACTIONS (1)
  - Product dose omission issue [Unknown]
